FAERS Safety Report 5035438-5 (Version None)
Quarter: 2006Q2

REPORT INFORMATION
  Report Type: 
  Country: None (occurrence: None)
  Receive Date: 20060526
  Receipt Date: 20060228
  Transmission Date: 20061013
  Serious: No
  Sender: FDA-Public Use
  Company Number: FABR-11425

PATIENT
  Age: 59 Year
  Sex: Female
  Weight: 70.3 kg

DRUGS (6)
  1. FABRAZYME [Suspect]
     Indication: FABRY'S DISEASE
     Dosage: 70 MG Q2WKS IV
     Route: 042
     Dates: start: 20060110, end: 20060221
  2. DIGITEK [Concomitant]
  3. ALTACE [Concomitant]
  4. TOPAMAX [Concomitant]
  5. ZYRTEC [Concomitant]
  6. ACETAMINOPHEN [Concomitant]

REACTIONS (4)
  - ASTHENIA [None]
  - FLUID OVERLOAD [None]
  - MUSCULOSKELETAL STIFFNESS [None]
  - PAIN [None]
